FAERS Safety Report 10551265 (Version 1)
Quarter: 2014Q4

REPORT INFORMATION
  Report Type: Spontaneous
  Country: TW (occurrence: None)
  Receive Date: 20141027
  Receipt Date: 20141027
  Transmission Date: 20150529
  Serious: Yes (Death, Hospitalization, Other)
  Sender: FDA-Public Use
  Company Number: 2014COV00142

PATIENT
  Age: 61 Year
  Sex: Male

DRUGS (2)
  1. METHOTREXATE [Suspect]
     Active Substance: METHOTREXATE
     Indication: RHEUMATOID ARTHRITIS
  2. PLAQUENIL [Suspect]
     Active Substance: HYDROXYCHLOROQUINE SULFATE
     Indication: RHEUMATOID ARTHRITIS

REACTIONS (7)
  - Hepatitis B [None]
  - Dizziness [None]
  - Shock [None]
  - Acute hepatic failure [None]
  - Dry mouth [None]
  - Seizure [None]
  - Hepatic encephalopathy [None]
